FAERS Safety Report 6044963-X (Version None)
Quarter: 2009Q1

REPORT INFORMATION
  Report Type: 
  Country: None (occurrence: None)
  Receive Date: 20090121
  Receipt Date: 20090115
  Transmission Date: 20090719
  Serious: No
  Sender: FDA-Public Use
  Company Number: GB-JNJFOC-20090101509

PATIENT
  Sex: Male

DRUGS (11)
  1. DURAGESIC-100 [Suspect]
     Route: 062
  2. DURAGESIC-100 [Suspect]
     Indication: MUSCULOSKELETAL CHEST PAIN
     Route: 062
  3. DIGOXIN [Concomitant]
     Route: 065
  4. SERETIDE [Concomitant]
     Indication: CHRONIC OBSTRUCTIVE PULMONARY DISEASE
     Route: 065
  5. TIOTROPIUM [Concomitant]
     Indication: CHRONIC OBSTRUCTIVE PULMONARY DISEASE
     Route: 065
  6. FOROSEMIDE [Concomitant]
     Indication: CARDIAC FAILURE CONGESTIVE
     Route: 065
  7. FENTANYL CITRATE [Concomitant]
     Indication: PAIN
     Route: 065
  8. OMEPRAZOLE [Concomitant]
     Route: 065
  9. NICORANDIL [Concomitant]
     Indication: MYOCARDIAL ISCHAEMIA
     Route: 065
  10. PRAVASTATIN [Concomitant]
     Indication: MYOCARDIAL ISCHAEMIA
     Route: 065
  11. CARBOCISTEINE [Concomitant]
     Indication: CHRONIC OBSTRUCTIVE PULMONARY DISEASE
     Route: 065

REACTIONS (1)
  - WRONG TECHNIQUE IN DRUG USAGE PROCESS [None]
